FAERS Safety Report 21402118 (Version 1)
Quarter: 2022Q4

REPORT INFORMATION
  Report Type: Spontaneous
  Country: DE (occurrence: DE)
  Receive Date: 20221003
  Receipt Date: 20221003
  Transmission Date: 20230113
  Serious: Yes (Hospitalization, Other)
  Sender: FDA-Public Use
  Company Number: None

PATIENT
  Age: 54 Year
  Sex: Female
  Weight: 62 kg

DRUGS (3)
  1. CARBAMAZEPINE [Suspect]
     Active Substance: CARBAMAZEPINE
     Indication: Product used for unknown indication
     Dosage: 600 MG, 0-0-2-0
     Route: 065
  2. AMLODIPINE [Concomitant]
     Active Substance: AMLODIPINE BESYLATE
     Indication: Product used for unknown indication
     Dosage: 5 MG, 1-0-0-0
     Route: 065
  3. OLMESARTAN [Concomitant]
     Active Substance: OLMESARTAN
     Indication: Product used for unknown indication
     Dosage: 20 MG, 1-0-1-0
     Route: 065

REACTIONS (6)
  - Condition aggravated [Recovered/Resolved]
  - Hyponatraemia [Recovered/Resolved]
  - Electrolyte imbalance [Recovered/Resolved]
  - Partial seizures [Recovered/Resolved]
  - Depressed level of consciousness [Recovered/Resolved]
  - Dysphagia [Recovered/Resolved]
